FAERS Safety Report 7534542-7 (Version None)
Quarter: 2011Q2

REPORT INFORMATION
  Report Type: 
  Country: None (occurrence: None)
  Receive Date: 20110609
  Receipt Date: 20090619
  Transmission Date: 20111010
  Serious: Yes (Hospitalization, Other)
  Sender: FDA-Public Use
  Company Number: PHHO2009AU09707

PATIENT
  Sex: Male

DRUGS (21)
  1. PREDNISOLONE [Suspect]
     Indication: RENAL TRANSPLANT
     Dosage: 20 MG ONCE DAILY
     Route: 048
     Dates: start: 20030902
  2. DACLIZUMAB [Suspect]
     Indication: RENAL TRANSPLANT
     Dosage: 190MG
     Route: 042
     Dates: start: 20030903, end: 20031028
  3. ACETAMINOPHEN [Concomitant]
  4. DACLIZUMAB [Suspect]
     Dosage: 95 MG ONCE IN EVERY TWO WEEKS
  5. BACTRIM [Concomitant]
  6. PRAZOSIN HCL [Concomitant]
  7. NYSTATIN [Concomitant]
  8. VALACYCLOVIR [Concomitant]
  9. CYCLOSPORINE [Suspect]
     Indication: RENAL TRANSPLANT
     Dosage: 200 MG, BID
     Route: 048
     Dates: start: 20030902, end: 20031007
  10. METOPROLOL [Concomitant]
  11. CEFAZOLIN [Concomitant]
  12. MYCOPHENOLATE MEFETIL [Suspect]
     Dosage: 1500 MG ONCE DAILY
     Route: 048
     Dates: start: 20040106
  13. CITALOPRAM HYDROBROMIDE [Concomitant]
  14. RANITIDINE [Concomitant]
  15. MYCOPHENOLATE MEFETIL [Suspect]
     Indication: RENAL TRANSPLANT
     Dosage: 1 G, BID
     Route: 048
     Dates: start: 20030902
  16. CYCLOSPORINE [Suspect]
     Dosage: 75 MG, BID
     Route: 048
     Dates: start: 20031007
  17. ZOLPIDEM [Suspect]
     Indication: INSOMNIA
     Dosage: 10 MG, UNK
     Route: 048
     Dates: start: 20030910, end: 20030910
  18. METOCLOPRAMIDE HYDROCHLORIDE [Concomitant]
  19. TEMAZEPAM [Concomitant]
  20. LERCANIDIPINE [Concomitant]
  21. AMLODIPINE [Concomitant]

REACTIONS (4)
  - OVERDOSE [None]
  - URETERIC OBSTRUCTION [None]
  - HYDRONEPHROSIS [None]
  - LYMPHOCELE [None]
